FAERS Safety Report 8183791-6 (Version None)
Quarter: 2012Q1

REPORT INFORMATION
  Report Type: 
  Country: None (occurrence: None)
  Receive Date: 20120305
  Receipt Date: 20120301
  Transmission Date: 20120608
  Serious: Yes (Death)
  Sender: FDA-Public Use
  Company Number: PHEH2012US002046

PATIENT
  Sex: Female
  Weight: 68 kg

DRUGS (1)
  1. NEORAL [Suspect]
     Indication: RENAL TRANSPLANT
     Dosage: 125 MG, BID (1 TABLET OF 25 MG AND ONE OF 100 MG)
     Route: 048
     Dates: start: 20070101

REACTIONS (1)
  - DEATH [None]
